FAERS Safety Report 10108991 (Version 2)
Quarter: 2015Q4

REPORT INFORMATION
  Report Type: Spontaneous
  Country: US (occurrence: US)
  Receive Date: 20140425
  Receipt Date: 20151124
  Transmission Date: 20160304
  Serious: Yes (Hospitalization, Other)
  Sender: FDA-Public Use
  Company Number: US-BAYER-2014-058778

PATIENT
  Age: 30 Year
  Sex: Female
  Weight: 108.84 kg

DRUGS (4)
  1. YAZ [Suspect]
     Active Substance: DROSPIRENONE\ETHINYL ESTRADIOL
  2. PRAVASTATIN [Concomitant]
     Active Substance: PRAVASTATIN\PRAVASTATIN SODIUM
  3. LISINOPRIL. [Concomitant]
     Active Substance: LISINOPRIL
  4. BEYAZ [Suspect]
     Active Substance: DROSPIRENONE\ETHINYL ESTRADIOL\LEVOMEFOLATE CALCIUM

REACTIONS (8)
  - Embolism arterial [None]
  - Pain [None]
  - Injury [None]
  - Anxiety [None]
  - Quality of life decreased [None]
  - Anhedonia [None]
  - Cerebrovascular accident [None]
  - Emotional distress [None]

NARRATIVE: CASE EVENT DATE: 201212
